FAERS Safety Report 10494174 (Version 2)
Quarter: 2014Q4

REPORT INFORMATION
  Report Type: Spontaneous
  Country: ES (occurrence: ES)
  Receive Date: 20141003
  Receipt Date: 20141003
  Transmission Date: 20150528
  Serious: Yes (Other)
  Sender: FDA-Public Use
  Company Number: ES-AMGEN-ESPSP2014047990

PATIENT
  Age: 55 Year
  Sex: Female

DRUGS (2)
  1. ENBREL [Suspect]
     Active Substance: ETANERCEPT
     Indication: PSORIASIS
     Dosage: 50 MG, TWICE WEEKLY (WEDNESDAYS AND SATURDAYS)
     Route: 058
     Dates: start: 20140521, end: 20140913
  2. ENBREL [Suspect]
     Active Substance: ETANERCEPT
     Dosage: UNK
     Route: 058

REACTIONS (12)
  - Stress [Unknown]
  - Feeling of despair [Unknown]
  - Drug effect incomplete [Unknown]
  - Rheumatoid arthritis [Unknown]
  - Urticaria [Unknown]
  - Product quality issue [Unknown]
  - Eczema [Unknown]
  - Psoriasis [Unknown]
  - Pruritus [Unknown]
  - Arthralgia [Unknown]
  - Injection site erythema [Unknown]
  - Injection site pruritus [Unknown]

NARRATIVE: CASE EVENT DATE: 2014
